FAERS Safety Report 8996941 (Version 1)
Quarter: 2012Q4

REPORT INFORMATION
  Report Type: Spontaneous
  Country: US (occurrence: None)
  Receive Date: 20121221
  Receipt Date: 20121221
  Transmission Date: 20130627
  Serious: Yes (Hospitalization)
  Sender: FDA-Public Use
  Company Number: OXYC20120066

PATIENT
  Age: 56 Year
  Sex: Male

DRUGS (2)
  1. OXYCODONE HCL (OXYCODONE) (TABLETS) [Suspect]
     Indication: SUICIDE ATTEMPT
     Route: 048
  2. KLONOPIN (CLONAZEPAM) (TABLETS) [Suspect]
     Indication: SUICIDE ATTEMPT
     Route: 048

REACTIONS (7)
  - Overdose [None]
  - Quadriplegia [None]
  - Suicide attempt [None]
  - Spinal cord injury cervical [None]
  - Spinal cord oedema [None]
  - Ligament injury [None]
  - Cervical spinal stenosis [None]
